FAERS Safety Report 9667845 (Version 3)
Quarter: 2014Q1

REPORT INFORMATION
  Report Type: Spontaneous
  Country: JP (occurrence: JP)
  Receive Date: 20131104
  Receipt Date: 20140331
  Transmission Date: 20141002
  Serious: Yes (Other)
  Sender: FDA-Public Use
  Company Number: PHHY2013JP124395

PATIENT
  Sex: Male

DRUGS (5)
  1. TEGRETOL [Suspect]
     Indication: TEMPORAL LOBE EPILEPSY
     Dosage: 1200 MG, DAILY
     Route: 048
  2. ALEVIATIN [Suspect]
     Indication: TEMPORAL LOBE EPILEPSY
     Dosage: 300 MG
     Route: 048
     Dates: end: 20130617
  3. CLONAZEPAM [Suspect]
     Indication: TEMPORAL LOBE EPILEPSY
     Dosage: 1 MG
     Route: 048
  4. TOPIRAMATE [Suspect]
     Indication: TEMPORAL LOBE EPILEPSY
     Dosage: 300 MG
     Route: 048
  5. LEVETIRACETAM [Suspect]
     Indication: TEMPORAL LOBE EPILEPSY
     Dosage: 2000 MG
     Route: 048

REACTIONS (9)
  - Osteomalacia [Unknown]
  - Back pain [Unknown]
  - Pain in extremity [Unknown]
  - Bone density decreased [Unknown]
  - Hypophosphataemia [Unknown]
  - Hypocalcaemia [Unknown]
  - Vitamin D decreased [Not Recovered/Not Resolved]
  - Blood parathyroid hormone increased [Unknown]
  - Blood alkaline phosphatase increased [Unknown]
